FAERS Safety Report 22700129 (Version 5)
Quarter: 2023Q4

REPORT INFORMATION
  Report Type: Spontaneous
  Country: US (occurrence: US)
  Receive Date: 20230713
  Receipt Date: 20231013
  Transmission Date: 20240110
  Serious: Yes (Hospitalization, Other)
  Sender: FDA-Public Use
  Company Number: US-UNITED THERAPEUTICS-UNT-2023-019022

PATIENT
  Sex: Female

DRUGS (8)
  1. REMODULIN [Suspect]
     Active Substance: TREPROSTINIL
     Indication: Pulmonary arterial hypertension
     Dosage: 0.03333 ?G/KG, CONTINUING
     Route: 058
  2. REMODULIN [Suspect]
     Active Substance: TREPROSTINIL
     Dosage: 0.02821 ?G/KG, CONTINUING
     Route: 058
     Dates: start: 202307, end: 202307
  3. REMODULIN [Suspect]
     Active Substance: TREPROSTINIL
     Dosage: 0.03333 ?G/KG, CONTINUING
     Route: 058
     Dates: start: 202307, end: 2023
  4. REMODULIN [Suspect]
     Active Substance: TREPROSTINIL
     Dosage: 0.03077 ?G/KG, CONTINUING
     Route: 058
     Dates: start: 202307
  5. REMODULIN [Suspect]
     Active Substance: TREPROSTINIL
     Dosage: 0.0359 ?G/KG, CONTINUING
     Route: 058
  6. REMODULIN [Suspect]
     Active Substance: TREPROSTINIL
     Dosage: UNK, CONTINUING
     Route: 058
     Dates: start: 202110
  7. REMODULIN [Suspect]
     Active Substance: TREPROSTINIL
     Indication: Pulmonary arterial hypertension
     Dosage: 0.005 ?G/KG, CONTINUING
     Route: 041
  8. REMODULIN [Suspect]
     Active Substance: TREPROSTINIL
     Dosage: UNK, CONTINUING
     Route: 041
     Dates: start: 20230703, end: 202307

REACTIONS (15)
  - Dyspnoea exertional [Unknown]
  - Infusion site pain [Recovering/Resolving]
  - Infusion site reaction [Unknown]
  - Device dislocation [Unknown]
  - Device kink [Unknown]
  - Device malfunction [Unknown]
  - Pericarditis constrictive [Recovered/Resolved]
  - Fatigue [Unknown]
  - Arthralgia [Unknown]
  - Headache [Unknown]
  - Pain in jaw [Unknown]
  - Pain [Unknown]
  - Nausea [Unknown]
  - Diarrhoea [Unknown]
  - Device operational issue [Recovered/Resolved]

NARRATIVE: CASE EVENT DATE: 20230101
